FAERS Safety Report 18062017 (Version 1)
Quarter: 2020Q3

REPORT INFORMATION
  Report Type: Spontaneous
  Country: US (occurrence: US)
  Receive Date: 20200723
  Receipt Date: 20200723
  Transmission Date: 20201103
  Serious: Yes (Other)
  Sender: FDA-Public Use
  Company Number: US-HIKMA PHARMACEUTICALS USA INC.-US-H14001-20-03319

PATIENT
  Age: 40 Year
  Sex: Female

DRUGS (11)
  1. AMIKACIN. [Suspect]
     Active Substance: AMIKACIN
     Indication: PRODUCT USED FOR UNKNOWN INDICATION
     Dosage: UNKNOWN
     Route: 065
  2. ISONIAZID. [Suspect]
     Active Substance: ISONIAZID
     Indication: DRUG THERAPY
     Dosage: UNKNOWN
     Route: 065
  3. LEVOFLOXACIN. [Concomitant]
     Active Substance: LEVOFLOXACIN
     Indication: SEPTIC SHOCK
     Dosage: UNKNOWN
     Route: 065
  4. CLARITHROMYCIN. [Suspect]
     Active Substance: CLARITHROMYCIN
     Indication: PRODUCT USED FOR UNKNOWN INDICATION
     Dosage: UNKNOWN
     Route: 065
  5. PIPERACILLIN/TAZOBACTAM [Concomitant]
     Active Substance: PIPERACILLIN SODIUM\TAZOBACTAM SODIUM
     Indication: SEPTIC SHOCK
     Dosage: UNKNOWN
     Route: 065
  6. VANCOMYCIN [Concomitant]
     Active Substance: VANCOMYCIN
     Indication: SEPTIC SHOCK
     Dosage: UNKNOWN
     Route: 065
  7. RIFAMPIN. [Concomitant]
     Active Substance: RIFAMPIN
     Indication: DRUG THERAPY
     Dosage: UNKNOWN
     Route: 065
  8. PYRAZINAMIDE. [Concomitant]
     Active Substance: PYRAZINAMIDE
     Indication: DRUG THERAPY
     Dosage: UNKNOWN
     Route: 065
  9. AZITHROMYCIN ANHYDROUS. [Concomitant]
     Active Substance: AZITHROMYCIN ANHYDROUS
     Indication: PRODUCT USED FOR UNKNOWN INDICATION
     Dosage: UNKNOWN
     Route: 065
  10. ETHAMBUTOL [Concomitant]
     Active Substance: ETHAMBUTOL HYDROCHLORIDE
     Indication: DRUG THERAPY
     Dosage: UNKNOWN
     Route: 065
  11. PYRIDOXINE [Concomitant]
     Active Substance: PYRIDOXINE
     Indication: DRUG THERAPY
     Dosage: UNKNOWN
     Route: 064

REACTIONS (4)
  - Hepatotoxicity [Unknown]
  - Aspartate aminotransferase increased [Unknown]
  - Drug intolerance [Recovered/Resolved]
  - Drug eruption [Unknown]
